FAERS Safety Report 21920547 (Version 5)
Quarter: 2023Q2

REPORT INFORMATION
  Report Type: Report from Study
  Country: US (occurrence: US)
  Receive Date: 20230127
  Receipt Date: 20230623
  Transmission Date: 20230722
  Serious: Yes (Life-Threatening, Other)
  Sender: FDA-Public Use
  Company Number: US-002147023-NVSC2023US013767

PATIENT
  Sex: Male

DRUGS (5)
  1. ENTRESTO [Suspect]
     Active Substance: SACUBITRIL\VALSARTAN
     Indication: Product used for unknown indication
     Dosage: 1 DOSAGE FORM, BID
     Route: 065
     Dates: start: 202202
  2. METOPROLOL [Suspect]
     Active Substance: METOPROLOL
     Indication: Product used for unknown indication
     Dosage: UNK
     Route: 065
     Dates: start: 2013
  3. METOPROLOL [Suspect]
     Active Substance: METOPROLOL
     Dosage: 200 MG
     Route: 065
  4. METFORMIN [Suspect]
     Active Substance: METFORMIN HYDROCHLORIDE
     Indication: Product used for unknown indication
     Dosage: UNK
     Route: 065
     Dates: start: 2003
  5. LISINOPRIL [Suspect]
     Active Substance: LISINOPRIL
     Indication: Product used for unknown indication
     Dosage: 60 MG
     Route: 065
     Dates: start: 2013

REACTIONS (11)
  - Meniere^s disease [Recovering/Resolving]
  - Vertigo [Recovering/Resolving]
  - Balance disorder [Recovering/Resolving]
  - Back pain [Unknown]
  - Skin ulcer [Unknown]
  - Arthralgia [Unknown]
  - Blood pressure increased [Recovered/Resolved]
  - Fluid retention [Recovered/Resolved]
  - Heart alternation [Not Recovered/Not Resolved]
  - Decreased activity [Not Recovered/Not Resolved]
  - Cough [Recovered/Resolved]

NARRATIVE: CASE EVENT DATE: 20130101
